FAERS Safety Report 24640127 (Version 1)
Quarter: 2024Q4

REPORT INFORMATION
  Report Type: Spontaneous
  Country: GB (occurrence: GB)
  Receive Date: 20241120
  Receipt Date: 20241120
  Transmission Date: 20250115
  Serious: Yes (Death)
  Sender: ADC THERAPEUTICS
  Company Number: GB-BIOVITRUM-2024-GB-014303

PATIENT
  Age: 71 Year
  Sex: Male

DRUGS (1)
  1. ZYNLONTA [Suspect]
     Active Substance: LONCASTUXIMAB TESIRINE-LPYL
     Indication: Product used for unknown indication
     Dosage: UNK
     Dates: start: 202404

REACTIONS (5)
  - Infection [Fatal]
  - Lung infiltration [Unknown]
  - Lymphadenopathy [Unknown]
  - Minimal residual disease [Unknown]
  - COVID-19 [Unknown]

NARRATIVE: CASE EVENT DATE: 20241001
